FAERS Safety Report 4586093-X (Version None)
Quarter: 2005Q1

REPORT INFORMATION
  Report Type: 
  Country: None (occurrence: None)
  Receive Date: 20050125
  Receipt Date: 20041018
  Transmission Date: 20050727
  Serious: No
  Sender: FDA-Public Use
  Company Number: USA041081360

PATIENT
  Age: 63 Year
  Sex: Female
  Weight: 67 kg

DRUGS (7)
  1. FORTEO [Suspect]
     Indication: OSTEOPOROSIS
     Dosage: 20 UG/1 DAY
     Dates: start: 20051015
  2. PREVACID [Concomitant]
  3. CALCIUM WITH VITAMIN D [Concomitant]
  4. LIPITOR [Concomitant]
  5. DITROPAN [Concomitant]
  6. GLUCOSAMINE [Concomitant]
  7. MULTI-VITAMIN [Concomitant]

REACTIONS (7)
  - BLOOD PRESSURE DECREASED [None]
  - DIZZINESS [None]
  - DRY MOUTH [None]
  - FEELING ABNORMAL [None]
  - INJECTION SITE ERYTHEMA [None]
  - NASOPHARYNGITIS [None]
  - RHINORRHOEA [None]
